FAERS Safety Report 20853993 (Version 1)
Quarter: 2022Q2

REPORT INFORMATION
  Report Type: Spontaneous
  Country: DE (occurrence: None)
  Receive Date: 20220520
  Receipt Date: 20220520
  Transmission Date: 20220721
  Serious: Yes (Hospitalization, Other)
  Sender: FDA-Public Use
  Company Number: 2022A186546

PATIENT
  Age: 43 Year
  Sex: Female

DRUGS (11)
  1. BUDESONIDE [Suspect]
     Active Substance: BUDESONIDE
     Route: 055
  2. FORMOTEROL [Concomitant]
     Active Substance: FORMOTEROL
  3. BUDESONIDE [Concomitant]
     Active Substance: BUDESONIDE
  4. ALBUTEROL [Concomitant]
     Active Substance: ALBUTEROL
  5. PREDNISOLONE [Concomitant]
     Active Substance: PREDNISOLONE
  6. DULOXETINE [Concomitant]
     Active Substance: DULOXETINE
  7. TRIPRAMIN [Concomitant]
  8. FENTONEROL [Concomitant]
  9. FORMOTEROL/BECLOMETASON [Concomitant]
  10. TIOTROPIUM [Concomitant]
     Active Substance: TIOTROPIUM
  11. PANTOPRAZOLE [Concomitant]
     Active Substance: PANTOPRAZOLE

REACTIONS (2)
  - Asthma [Unknown]
  - Gastrooesophageal reflux disease [Unknown]
